FAERS Safety Report 23631532 (Version 2)
Quarter: 2024Q2

REPORT INFORMATION
  Report Type: Spontaneous
  Country: JP (occurrence: JP)
  Receive Date: 20240314
  Receipt Date: 20240419
  Transmission Date: 20240716
  Serious: Yes (Other)
  Sender: FDA-Public Use
  Company Number: JP-PFIZER INC-202400063924

PATIENT
  Age: 84 Year
  Sex: Male

DRUGS (9)
  1. SOLU-MEDROL [Suspect]
     Active Substance: METHYLPREDNISOLONE SODIUM SUCCINATE
     Indication: Peripheral sensory neuropathy
     Dosage: 1000 MG
     Route: 042
     Dates: start: 20231111, end: 20231113
  2. PREGABALIN [Concomitant]
     Active Substance: PREGABALIN
     Indication: Hypoaesthesia
     Dosage: 50 MG (IN 2 DIVIDED DOSES FOLLOWED BY GRADUAL DOSE INCREASE)
  3. PREGABALIN [Concomitant]
     Active Substance: PREGABALIN
     Dosage: 300 MG (DIVIDED IN 2 DOSES)
  4. ROSUVASTATIN [Concomitant]
     Active Substance: ROSUVASTATIN
     Dosage: UNK
  5. VONOPRAZAN FUMARATE [Concomitant]
     Active Substance: VONOPRAZAN FUMARATE
     Dosage: UNK
  6. AMLODIPINE [Concomitant]
     Active Substance: AMLODIPINE BESYLATE
     Dosage: UNK
     Dates: end: 20231207
  7. SILODOSIN [Concomitant]
     Active Substance: SILODOSIN
     Dosage: UNK
  8. VIBEGRON [Concomitant]
     Active Substance: VIBEGRON
     Dosage: UNK
  9. BREZTRI [Concomitant]
     Active Substance: BUDESONIDE\FORMOTEROL\GLYCOPYRROLATE
     Dosage: 120 INHALATIONS

REACTIONS (7)
  - Delirium [Recovering/Resolving]
  - Pneumonia aspiration [Not Recovered/Not Resolved]
  - Agitation [Recovering/Resolving]
  - Atelectasis [Not Recovered/Not Resolved]
  - Oxygen saturation decreased [Recovering/Resolving]
  - White blood cell count decreased [Unknown]
  - Off label use [Unknown]

NARRATIVE: CASE EVENT DATE: 20230101
